FAERS Safety Report 6280128-4 (Version None)
Quarter: 2009Q3

REPORT INFORMATION
  Report Type: 
  Country: None (occurrence: None)
  Receive Date: 20090723
  Receipt Date: 20080416
  Transmission Date: 20100115
  Serious: Yes (Other)
  Sender: FDA-Public Use
  Company Number: US-ASTRAZENECA-2006UW22342

PATIENT
  Age: 33 Year
  Sex: Female
  Weight: 84.4 kg

DRUGS (20)
  1. SEROQUEL [Suspect]
     Indication: BIPOLAR DISORDER
     Dosage: 25-400 MG
     Route: 048
     Dates: start: 20031210
  2. SEROQUEL [Suspect]
     Indication: SCHIZOPHRENIA
     Dosage: 25-400 MG
     Route: 048
     Dates: start: 20031210
  3. SEROQUEL [Suspect]
     Indication: DEPRESSION
     Dosage: 25-400 MG
     Route: 048
     Dates: start: 20031210
  4. SEROQUEL [Suspect]
     Route: 048
     Dates: start: 20040101, end: 20060101
  5. SEROQUEL [Suspect]
     Route: 048
     Dates: start: 20040101, end: 20060101
  6. SEROQUEL [Suspect]
     Route: 048
     Dates: start: 20040101, end: 20060101
  7. GEODON [Concomitant]
  8. RISPERDAL [Concomitant]
  9. THORAZINE [Concomitant]
  10. ZYPREXA [Concomitant]
  11. ZOLOFT [Concomitant]
     Route: 048
  12. STRATTERA [Concomitant]
     Route: 048
  13. WELLBUTRIN XL [Concomitant]
  14. HUMALOG [Concomitant]
  15. LANTUS [Concomitant]
     Dosage: 15-20 UNITS
  16. XANAX [Concomitant]
     Dates: end: 20060926
  17. AMITRIPTYLINE HCL [Concomitant]
     Indication: NEUROPATHY PERIPHERAL
     Dosage: 25-50 MG AT NIGHT
     Route: 048
  18. ALBUTEROL [Concomitant]
  19. LUNESTA [Concomitant]
     Indication: INSOMNIA
  20. PHENERGAN [Concomitant]
     Indication: NAUSEA

REACTIONS (3)
  - DIABETES MELLITUS [None]
  - DIABETES MELLITUS INADEQUATE CONTROL [None]
  - DIABETIC NEUROPATHY [None]
